FAERS Safety Report 7850952-2 (Version None)
Quarter: 2011Q4

REPORT INFORMATION
  Report Type: 
  Country: None (occurrence: None)
  Receive Date: 20111024
  Receipt Date: 20111012
  Transmission Date: 20120403
  Serious: Yes (Death, Hospitalization, Other)
  Sender: FDA-Public Use
  Company Number: AUR-APL-2011-05533

PATIENT
  Age: 60 Year
  Sex: Male

DRUGS (15)
  1. ISOPHANE INSULIN [Suspect]
     Indication: DIABETES MELLITUS
     Dosage: (8 IU)
     Dates: start: 20110718
  2. OXYCONTIN [Concomitant]
  3. METFORMIN HCL [Suspect]
     Indication: TYPE 2 DIABETES MELLITUS
     Dosage: (1.5 GM)
     Dates: end: 20110711
  4. DALTEPARIN SODIUM [Suspect]
     Indication: PRODUCT USED FOR UNKNOWN INDICATION
     Dosage: (1500 IU, 1 D)
     Dates: start: 20110711
  5. OMEPRAZOLE [Concomitant]
  6. ACETYLSALICYLIC ACID SRT [Suspect]
     Indication: PRODUCT USED FOR UNKNOWN INDICATION
     Dosage: (75 MG)
     Dates: end: 20110722
  7. ASPIRIN [Concomitant]
  8. NOVOLOG [Suspect]
     Indication: DIABETES MELLITUS
     Dosage: (8 IU)
     Dates: start: 20110711, end: 20110719
  9. CLOPIDOGREL [Suspect]
     Indication: PRODUCT USED FOR UNKNOWN INDICATION
     Dosage: (75 MG)
  10. LACTULOSE [Suspect]
     Indication: PRODUCT USED FOR UNKNOWN INDICATION
     Dates: start: 20110720, end: 20110725
  11. IMPORTAL (LACTITOL) [Concomitant]
  12. BLINDED THERAPY [Suspect]
     Indication: TYPE 2 DIABETES MELLITUS
     Dates: start: 20110414
  13. CILAXORAL (SODIUM PICOSULFATE) [Suspect]
     Indication: PRODUCT USED FOR UNKNOWN INDICATION
     Dates: start: 20110712, end: 20110725
  14. FUROSEMIDE [Concomitant]
  15. SPIRONOLACTONE [Concomitant]

REACTIONS (12)
  - HEPATIC CIRRHOSIS [None]
  - ARRHYTHMIA [None]
  - SUDDEN CARDIAC DEATH [None]
  - PORTAL VEIN THROMBOSIS [None]
  - CONSTIPATION [None]
  - ASCITES [None]
  - HAEMATURIA [None]
  - PULMONARY EMBOLISM [None]
  - INGUINAL HERNIA [None]
  - PANCREATITIS ACUTE [None]
  - DEHYDRATION [None]
  - DILATATION VENTRICULAR [None]
